FAERS Safety Report 4359624-2 (Version None)
Quarter: 2004Q2

REPORT INFORMATION
  Report Type: 
  Country: None (occurrence: None)
  Receive Date: 20040514
  Receipt Date: 20040514
  Transmission Date: 20050107
  Serious: No
  Sender: FDA-Public Use
  Company Number: None

PATIENT
  Age: 65 Year
  Sex: Female
  Weight: 57.73 kg

DRUGS (2)
  1. FLUOROURACIL [Suspect]
     Indication: BREAST CANCER
     Dosage: 890 MG X 1 IV
     Route: 042
     Dates: start: 20040308, end: 20040308
  2. AMLODIPINE BESYLATE [Concomitant]

REACTIONS (1)
  - STOMATITIS [None]
